FAERS Safety Report 10335370 (Version 1)
Quarter: 2014Q3

REPORT INFORMATION
  Report Type: Spontaneous
  Country: US (occurrence: US)
  Receive Date: 20140723
  Receipt Date: 20140723
  Transmission Date: 20150326
  Serious: No
  Sender: FDA-Public Use
  Company Number: US-UNITED THERAPEUTICS-UTC-046471

PATIENT
  Age: 52 Year
  Sex: Female
  Weight: 83.91 kg

DRUGS (1)
  1. REMODULIN [Suspect]
     Active Substance: TREPROSTINIL
     Dosage: 0.1 UG/KG/MIN
     Route: 041
     Dates: start: 20090128

REACTIONS (4)
  - Device malfunction [Unknown]
  - Fatigue [Unknown]
  - Malaise [Unknown]
  - Drug dose omission [Unknown]

NARRATIVE: CASE EVENT DATE: 20140318
